FAERS Safety Report 7173636-5 (Version None)
Quarter: 2010Q4

REPORT INFORMATION
  Report Type: 
  Country: None (occurrence: None)
  Receive Date: 20101219
  Receipt Date: 20100305
  Transmission Date: 20110411
  Serious: No
  Sender: FDA-Public Use
  Company Number: US-AMGEN-KDL395352

PATIENT

DRUGS (8)
  1. ENBREL [Suspect]
     Indication: PSORIASIS
     Dosage: 50 MG, 2 TIMES/WK
     Route: 058
     Dates: start: 20090623, end: 20100118
  2. AMITRIPTYLINE [Concomitant]
     Dosage: 100 MG, QD
  3. NAPROXEN [Concomitant]
     Dosage: 500 MG, BID
  4. ATENOLOL [Concomitant]
     Dosage: 50 MG, QD
  5. ESCITALOPRAM [Concomitant]
     Dosage: 10 MG, QD
  6. CANDESARTAN CILEXETIL [Concomitant]
     Dosage: 10 MG, QD
  7. OMEPRAZOLE [Concomitant]
     Dosage: 20 MG, QD
  8. POTASSIUM CITRATE [Concomitant]
     Dosage: 10 MG, QID

REACTIONS (1)
  - ERYTHEMA NODOSUM [None]
